FAERS Safety Report 6508030-0 (Version None)
Quarter: 2009Q4

REPORT INFORMATION
  Report Type: 
  Country: None (occurrence: None)
  Receive Date: 20091221
  Receipt Date: 20091211
  Transmission Date: 20100525
  Serious: Yes (Other)
  Sender: FDA-Public Use
  Company Number: ZA-ASTRAZENECA-2009SE05126

PATIENT
  Age: 24717 Day
  Sex: Female
  Weight: 75 kg

DRUGS (4)
  1. NEXIUM [Suspect]
     Indication: REFLUX OESOPHAGITIS
     Route: 048
     Dates: start: 20090613, end: 20090620
  2. GLAMARYL [Concomitant]
     Dates: start: 20000101
  3. METFORMIN HCL [Concomitant]
     Dates: start: 20000101
  4. APPROVEL [Concomitant]

REACTIONS (1)
  - TYPE 2 DIABETES MELLITUS [None]
